FAERS Safety Report 9393514 (Version 1)
Quarter: 2013Q3

REPORT INFORMATION
  Report Type: Spontaneous
  Country: DK (occurrence: DK)
  Receive Date: 20130710
  Receipt Date: 20130710
  Transmission Date: 20140515
  Serious: Yes (Hospitalization)
  Sender: FDA-Public Use
  Company Number: DK-BRISTOL-MYERS SQUIBB COMPANY-19072644

PATIENT
  Age: 10 Year
  Sex: 0
  Weight: 43 kg

DRUGS (1)
  1. ABILIFY [Suspect]
     Indication: TIC
     Dosage: 2.5 TO 5 ML.DATE OF LAST ADMINISTRATION :(6-OCT-2012)
     Dates: start: 20110528

REACTIONS (6)
  - Suicide attempt [Recovered/Resolved]
  - Akathisia [Recovered/Resolved]
  - Weight increased [Recovered/Resolved]
  - Petit mal epilepsy [Recovered/Resolved]
  - Hallucination [Recovered/Resolved]
  - Off label use [Unknown]
